FAERS Safety Report 12045966 (Version 1)
Quarter: 2016Q1

REPORT INFORMATION
  Report Type: Spontaneous
  Country: FI (occurrence: FI)
  Receive Date: 20160209
  Receipt Date: 20160209
  Transmission Date: 20160526
  Serious: Yes (Death, Other)
  Sender: FDA-Public Use
  Company Number: FI-CELGENE-FIN-2016015555

PATIENT

DRUGS (3)
  1. THALIDOMIDE [Suspect]
     Active Substance: THALIDOMIDE
     Indication: PRODUCT USED FOR UNKNOWN INDICATION
     Route: 048
  2. CELECOXIB. [Concomitant]
     Active Substance: CELECOXIB
     Indication: PRODUCT USED FOR UNKNOWN INDICATION
     Route: 048
  3. ETOPOSIDE. [Concomitant]
     Active Substance: ETOPOSIDE
     Indication: PRODUCT USED FOR UNKNOWN INDICATION
     Route: 048

REACTIONS (15)
  - Wound infection [Recovered/Resolved]
  - Pneumocystis jirovecii infection [Fatal]
  - Subdural haematoma [Recovered/Resolved]
  - Oedema [Unknown]
  - Pneumococcal sepsis [Fatal]
  - Neutropenia [Unknown]
  - Tremor [Unknown]
  - Aphasia [Recovered/Resolved]
  - Movement disorder [Recovered/Resolved]
  - Disease progression [Fatal]
  - Cellulitis [Recovered/Resolved]
  - Cerebral haemorrhage [Recovered/Resolved]
  - Infection [Unknown]
  - Neuropathy peripheral [Unknown]
  - Death [Fatal]
